FAERS Safety Report 18589487 (Version 2)
Quarter: 2020Q4

REPORT INFORMATION
  Report Type: Spontaneous
  Country: US (occurrence: US)
  Receive Date: 20201208
  Receipt Date: 20201229
  Transmission Date: 20210114
  Serious: Yes (Hospitalization, Other)
  Sender: FDA-Public Use
  Company Number: US-LUPIN PHARMACEUTICALS INC.-2020-09955

PATIENT
  Age: 14 Year
  Sex: Female

DRUGS (7)
  1. LAMOTRIGINE. [Suspect]
     Active Substance: LAMOTRIGINE
     Indication: AFFECTIVE DISORDER
     Dosage: UNK
     Route: 065
  2. TRIAMCINOLONE [Suspect]
     Active Substance: TRIAMCINOLONE
     Indication: DRUG REACTION WITH EOSINOPHILIA AND SYSTEMIC SYMPTOMS
     Dosage: UNK, BID (0.1 % OINTMENT TO BE APPLIED TWICE DAILY TO THE AFFECTED SKIN )
     Route: 061
  3. METHOTREXATE. [Suspect]
     Active Substance: METHOTREXATE
     Indication: ALOPECIA UNIVERSALIS
     Dosage: 10 MILLIGRAM, WEEKLY
     Route: 048
  4. CLOBETASOL PROPIONATE. [Suspect]
     Active Substance: CLOBETASOL PROPIONATE
     Indication: ALOPECIA UNIVERSALIS
     Dosage: UNK UNK, BID (APPLIED TWICE DAILY TO SCALP AND EYEBROWS, O0.05 % OINTMENT)
     Route: 061
  5. PREDNISONE. [Concomitant]
     Active Substance: PREDNISONE
     Indication: DRUG REACTION WITH EOSINOPHILIA AND SYSTEMIC SYMPTOMS
     Dosage: UNK (2-MONTH PREDNISONE TAPER)
     Route: 065
  6. LAMOTRIGINE. [Suspect]
     Active Substance: LAMOTRIGINE
     Indication: ATTENTION DEFICIT HYPERACTIVITY DISORDER
  7. TRIAMCINOLONE [Suspect]
     Active Substance: TRIAMCINOLONE
     Indication: ALOPECIA UNIVERSALIS
     Dosage: 3 MILLIGRAM PER MILLILITRE, UNK (INJECTED INTO THE LEFT PARIETAL SCALP, FOR A TOTAL DOSE OF 3 MG)
     Route: 026

REACTIONS (4)
  - Alopecia universalis [Not Recovered/Not Resolved]
  - Liver function test increased [Unknown]
  - Drug ineffective [Unknown]
  - Drug reaction with eosinophilia and systemic symptoms [Recovered/Resolved with Sequelae]
